FAERS Safety Report 5284386-4 (Version None)
Quarter: 2007Q2

REPORT INFORMATION
  Report Type: 
  Country: None (occurrence: None)
  Receive Date: 20070403
  Receipt Date: 20070322
  Transmission Date: 20071010
  Serious: Yes (Death, Hospitalization)
  Sender: FDA-Public Use
  Company Number: BR-BAYER-200711479GDS

PATIENT
  Age: 68 Year
  Sex: Male
  Weight: 51 kg

DRUGS (16)
  1. SORAFENIB [Suspect]
     Indication: NON-SMALL CELL LUNG CANCER
     Dosage: TOTAL DAILY DOSE: 400 MG
     Route: 048
     Dates: start: 20070309, end: 20070309
  2. SORAFENIB [Suspect]
     Dosage: TOTAL DAILY DOSE: 800 MG
     Route: 048
     Dates: end: 20070308
  3. SORAFENIB [Suspect]
     Dosage: TOTAL DAILY DOSE: 800 MG
     Route: 048
     Dates: start: 20070304
  4. SORAFENIB [Suspect]
     Dosage: TOTAL DAILY DOSE: 800 MG
     Route: 048
     Dates: start: 20070211, end: 20070302
  5. CARBOPLATIN [Suspect]
     Indication: NON-SMALL CELL LUNG CANCER
     Route: 042
     Dates: start: 20070210, end: 20070210
  6. PACLITAXEL [Suspect]
     Indication: NON-SMALL CELL LUNG CANCER
     Route: 042
     Dates: start: 20070210, end: 20070210
  7. NPH ILETIN II [Concomitant]
     Indication: DIABETES MELLITUS
     Route: 065
     Dates: start: 20060401
  8. KEFLIN [Concomitant]
     Indication: LUNG INFECTION
     Route: 065
     Dates: start: 20070310, end: 20070310
  9. KEFLIN [Concomitant]
     Route: 065
     Dates: start: 20070307, end: 20070307
  10. KEFLIN [Concomitant]
     Route: 065
     Dates: start: 20070308, end: 20070309
  11. OMEPRAZOLE [Concomitant]
     Indication: GASTRITIS
     Route: 065
     Dates: start: 20070308, end: 20070310
  12. INSULINA SIMPLES [Concomitant]
     Indication: DIABETES MELLITUS
     Route: 065
     Dates: start: 20070309, end: 20070309
  13. INSULINA SIMPLES [Concomitant]
     Route: 065
     Dates: start: 20070310, end: 20070310
  14. INSULINA SIMPLES [Concomitant]
     Route: 065
     Dates: start: 20070308, end: 20070308
  15. INSULINA SIMPLES [Concomitant]
     Route: 065
     Dates: start: 20070307, end: 20070307
  16. STYPTANON [Concomitant]
     Indication: HAEMOPTYSIS
     Route: 065
     Dates: start: 20070309, end: 20070309

REACTIONS (2)
  - PNEUMONITIS [None]
  - RESPIRATORY FAILURE [None]
